FAERS Safety Report 16351467 (Version 1)
Quarter: 2019Q2

REPORT INFORMATION
  Report Type: Spontaneous
  Country: GB (occurrence: GB)
  Receive Date: 20190524
  Receipt Date: 20190524
  Transmission Date: 20190711
  Serious: Yes (Hospitalization)
  Sender: FDA-Public Use
  Company Number: GB-TEVA-2019-GB-1053869

PATIENT
  Age: 60 Year
  Sex: Female
  Weight: 49.4 kg

DRUGS (21)
  1. BRIVARACETAM [Concomitant]
     Active Substance: BRIVARACETAM
  2. NICOTINE. [Concomitant]
     Active Substance: NICOTINE
  3. FLUCLOXACILLIN [Concomitant]
     Active Substance: FLUCLOXACILLIN
  4. MONTELUKAST [Concomitant]
     Active Substance: MONTELUKAST SODIUM
  5. MEBEVERINE [Concomitant]
     Active Substance: MEBEVERINE
  6. SPIRONOLACTONE. [Suspect]
     Active Substance: SPIRONOLACTONE
     Indication: CARDIAC FAILURE CONGESTIVE
     Dosage: 25 MILLIGRAM DAILY; IN THE MORNING
     Route: 048
     Dates: start: 20180801, end: 20190423
  7. TRELEGY ELLIPTA [Concomitant]
     Active Substance: FLUTICASONE FUROATE\UMECLIDINIUM BROMIDE\VILANTEROL TRIFENATATE
  8. DOXYCYCLINE. [Concomitant]
     Active Substance: DOXYCYCLINE
  9. PARACETAMOL [Concomitant]
     Active Substance: ACETAMINOPHEN
  10. CODEINE [Concomitant]
     Active Substance: CODEINE
  11. ACCRETE D3 [Concomitant]
     Active Substance: CALCIUM CARBONATE\CHOLECALCIFEROL
  12. AMITRIPTYLINE [Concomitant]
     Active Substance: AMITRIPTYLINE
  13. NEBIVOLOL. [Concomitant]
     Active Substance: NEBIVOLOL
  14. SALBUTAMOL [Concomitant]
     Active Substance: ALBUTEROL
  15. COLECALCIFEROL [Concomitant]
     Active Substance: CHOLECALCIFEROL
  16. IVABRADINE [Concomitant]
     Active Substance: IVABRADINE
  17. FUROSEMIDE. [Suspect]
     Active Substance: FUROSEMIDE
     Indication: CARDIAC FAILURE CONGESTIVE
     Dosage: 40 MILLIGRAM DAILY; IN THE MORNING
     Route: 048
     Dates: start: 20180801, end: 20190423
  18. ALVERINE CITRATE [Concomitant]
     Active Substance: ALVERINE CITRATE
  19. ALENDRONIC ACID [Concomitant]
     Active Substance: ALENDRONIC ACID
  20. RAMIPRIL. [Suspect]
     Active Substance: RAMIPRIL
     Indication: CARDIAC FAILURE CONGESTIVE
     Dosage: 1.25 MILLIGRAM DAILY;
     Route: 048
     Dates: start: 20180801, end: 20190423
  21. PREDNISOLONE. [Concomitant]
     Active Substance: PREDNISOLONE

REACTIONS (6)
  - Decreased appetite [Unknown]
  - Syncope [Unknown]
  - Lethargy [Unknown]
  - Sepsis [Unknown]
  - Malaise [Unknown]
  - Hypotension [Recovering/Resolving]

NARRATIVE: CASE EVENT DATE: 20190422
